FAERS Safety Report 6730716-3 (Version None)
Quarter: 2010Q2

REPORT INFORMATION
  Report Type: 
  Country: None (occurrence: None)
  Receive Date: 20100514
  Receipt Date: 20100507
  Transmission Date: 20101027
  Serious: Yes (Hospitalization)
  Sender: FDA-Public Use
  Company Number: UTC-000970

PATIENT
  Age: 60 Year
  Weight: 49 kg

DRUGS (8)
  1. TYVASO [Suspect]
     Indication: PULMONARY ARTERIAL HYPERTENSION
     Dosage: 216 MCG (54 MCG, 4 IN 1 D), INHALATION
     Route: 055
     Dates: start: 20100308
  2. PREDNISONE [Concomitant]
  3. LEVOTHYROXINE SODIUM [Concomitant]
  4. LIPITOR (ATORVASTATOR)) [Concomitant]
  5. FAMOTIDINE [Concomitant]
  6. DIGOXIN [Concomitant]
  7. NEXIUM [Concomitant]
  8. LEFTARIS (AMBRISENTAN) [Concomitant]

REACTIONS (1)
  - RECTAL HAEMORRHAGE [None]
